FAERS Safety Report 21652643 (Version 1)
Quarter: 2022Q4

REPORT INFORMATION
  Report Type: Spontaneous
  Country: IT (occurrence: IT)
  Receive Date: 20221128
  Receipt Date: 20221128
  Transmission Date: 20230113
  Serious: Yes (Other)
  Sender: FDA-Public Use
  Company Number: IT-BAYER-2022A160911

PATIENT
  Age: 56 Year
  Weight: 90 kg

DRUGS (2)
  1. REGORAFENIB [Suspect]
     Active Substance: REGORAFENIB
     Indication: Hepatocellular carcinoma
     Dosage: UNK
  2. SORAFENIB [Suspect]
     Active Substance: SORAFENIB
     Dosage: UNK

REACTIONS (5)
  - Hepatocellular carcinoma [None]
  - Hepatocellular carcinoma [None]
  - Myocardial ischaemia [None]
  - Cardiotoxicity [None]
  - Chest pain [None]

NARRATIVE: CASE EVENT DATE: 20201101
